FAERS Safety Report 9745267 (Version 1)
Quarter: 2013Q4

REPORT INFORMATION
  Report Type: Report from Study
  Country: DE (occurrence: DE)
  Receive Date: 20131211
  Receipt Date: 20131211
  Transmission Date: 20140711
  Serious: Yes (Other)
  Sender: FDA-Public Use
  Company Number: DE-BEH-2013039254

PATIENT
  Age: 52 Year
  Sex: Female
  Weight: 54 kg

DRUGS (21)
  1. PRIVIGEN [Suspect]
     Dosage: 5 VIALS A 10 G, TOTAL DOSE 55 G
     Dates: start: 20130417, end: 20130417
  2. PRIVIGEN [Suspect]
     Dosage: 1 VIAL A 5 G, TOTAL DOSE 55 G
     Dates: start: 20130417, end: 20130417
  3. PRIVIGEN [Suspect]
     Dosage: 4 VIALS A 10 G, TOTAL DOSE 55 G
     Dates: start: 20130418, end: 20130418
  4. PRIVIGEN [Suspect]
     Dosage: 1 VIAL A 10 G, TOTAL DOSE 55 G, LOT NO. 4337100072 DIFFICULT TO READ
     Dates: start: 20130418, end: 20130418
  5. PRIVIGEN [Suspect]
     Dosage: 1 VIAL A 5 G, TOTAL DOSE 55 G
     Dates: start: 20130418, end: 20130418
  6. PRIVIGEN [Suspect]
     Dosage: 5 VIALS A 10 G, TOTAL DOSE 55 G
     Dates: start: 20130521, end: 20130521
  7. PRIVIGEN [Suspect]
     Dosage: 1 VIAL A 5 G, TOTAL DOSE 55 G
     Dates: start: 20130521, end: 20130521
  8. PRIVIGEN [Suspect]
     Dosage: 5 VIALS A 10 G, TOTAL DOSE 55 G
     Dates: start: 20130522, end: 20130522
  9. PRIVIGEN [Suspect]
     Dosage: 1 VIAL A 5 G, TOTAL DOSE 55 G
     Dates: start: 20130522, end: 20130522
  10. PRIVIGEN [Suspect]
     Dosage: 5 VIALS A 10 G, TOTAL DOSE 55 G
     Dates: start: 20130702, end: 20130702
  11. PRIVIGEN [Suspect]
     Dosage: 1 VIAL A 5 G, TOTAL DOSE 55 G
     Dates: start: 20130702, end: 20130702
  12. PRIVIGEN [Suspect]
     Indication: SYSTEMIC LUPUS ERYTHEMATOSUS
     Dosage: 5 VIALS A 10 G, TOTAL DOSE 55 G
     Dates: start: 20130703, end: 20130703
  13. PRIVIGEN [Suspect]
     Dosage: 1 VIAL A 5 G, TOTAL DOSE 55 G
     Dates: start: 20130703, end: 20130703
  14. CELLCEPT [Concomitant]
  15. DECORTIN [Concomitant]
  16. SOLU-DECORTIN H [Concomitant]
     Route: 042
     Dates: start: 20130417, end: 20130417
  17. SOLU-DECORTIN H [Concomitant]
     Route: 042
     Dates: start: 20130418, end: 20130418
  18. SOLU-DECORTIN H [Concomitant]
     Route: 042
     Dates: start: 20130521, end: 20130521
  19. SOLU-DECORTIN H [Concomitant]
     Indication: PREMEDICATION
     Route: 042
     Dates: start: 20130522, end: 20130522
  20. SOLU-DECORTIN H [Concomitant]
     Route: 042
     Dates: start: 20130702, end: 20130702
  21. SOLU-DECORTIN H [Concomitant]
     Route: 042
     Dates: start: 20130703, end: 20130703

REACTIONS (1)
  - Clostridium difficile colitis [Recovered/Resolved]
